FAERS Safety Report 19951546 (Version 1)
Quarter: 2021Q4

REPORT INFORMATION
  Report Type: Spontaneous
  Country: HR (occurrence: HR)
  Receive Date: 20211014
  Receipt Date: 20211014
  Transmission Date: 20220303
  Serious: Yes (Death, Other)
  Sender: FDA-Public Use
  Company Number: HR-009507513-2110HRV002561

PATIENT
  Age: 52 Year
  Sex: Male

DRUGS (1)
  1. KEYTRUDA [Suspect]
     Active Substance: PEMBROLIZUMAB
     Indication: Oropharyngeal squamous cell carcinoma
     Dosage: 200 MILLIGRAM, Q3W

REACTIONS (3)
  - Pulmonary embolism [Fatal]
  - Malignant neoplasm progression [Unknown]
  - General physical health deterioration [Unknown]
